FAERS Safety Report 11178279 (Version 1)
Quarter: 2015Q2

REPORT INFORMATION
  Report Type: Report from Study
  Country: FR (occurrence: FR)
  Receive Date: 20150610
  Receipt Date: 20150610
  Transmission Date: 20150821
  Serious: Yes (Hospitalization)
  Sender: FDA-Public Use
  Company Number: FR-GLAXOSMITHKLINE-FR2015GSK080508

PATIENT
  Age: 74 Year
  Sex: Female

DRUGS (9)
  1. PLAVIX [Concomitant]
     Active Substance: CLOPIDOGREL BISULFATE
  2. INSPRA [Concomitant]
     Active Substance: EPLERENONE
  3. KARDEGIC [Concomitant]
     Active Substance: ASPIRIN LYSINE
  4. TAHOR [Concomitant]
     Active Substance: ATORVASTATIN CALCIUM
  5. ATACAND [Concomitant]
     Active Substance: CANDESARTAN CILEXETIL
  6. LASILIX [Concomitant]
     Active Substance: FUROSEMIDE
  7. OMEGA-3-ACID ETHYL ESTERS. [Suspect]
     Active Substance: OMEGA-3-ACID ETHYL ESTERS
     Indication: ISCHAEMIC HEART DISEASE PROPHYLAXIS
     Dosage: UNK
     Dates: start: 20071207, end: 20111211
  8. CARDENSIEL [Concomitant]
     Active Substance: BISOPROLOL FUMARATE
  9. NOVONORM [Concomitant]
     Active Substance: REPAGLINIDE

REACTIONS (1)
  - Hypoglycaemia [Unknown]
